FAERS Safety Report 5702540-1 (Version None)
Quarter: 2008Q2

REPORT INFORMATION
  Report Type: 
  Country: None (occurrence: None)
  Receive Date: 20080411
  Receipt Date: 20070214
  Transmission Date: 20081010
  Serious: No
  Sender: FDA-Public Use
  Company Number: US-ASTRAZENECA-2007UW02966

PATIENT
  Age: 51 Year
  Sex: Female
  Weight: 54.9 kg

DRUGS (4)
  1. TENORMIN [Suspect]
     Indication: HYPERTENSION
     Route: 048
     Dates: end: 20061101
  2. TENORMIN [Suspect]
     Route: 048
     Dates: start: 20061101, end: 20070201
  3. TENORMIN [Suspect]
     Route: 048
     Dates: start: 20070201, end: 20070201
  4. ATIVAN [Concomitant]

REACTIONS (5)
  - ANXIETY [None]
  - DIZZINESS [None]
  - MUSCLE SPASMS [None]
  - VENTRICULAR EXTRASYSTOLES [None]
  - VENTRICULAR TACHYCARDIA [None]
